FAERS Safety Report 23624572 (Version 4)
Quarter: 2024Q2

REPORT INFORMATION
  Report Type: Spontaneous
  Country: IT (occurrence: IT)
  Receive Date: 20240313
  Receipt Date: 20240429
  Transmission Date: 20240716
  Serious: Yes (Hospitalization, Disabling, Other)
  Sender: FDA-Public Use
  Company Number: IT-002147023-NVSC2022IT215769

PATIENT
  Age: 58 Year
  Sex: Male

DRUGS (17)
  1. BICALUTAMIDE [Suspect]
     Active Substance: BICALUTAMIDE
     Indication: Extramammary Paget^s disease
     Dosage: 50 MG, QD (1/DAY),FOURTH-LINE TREATMENT
     Route: 048
     Dates: start: 201906, end: 201908
  2. BICALUTAMIDE [Suspect]
     Active Substance: BICALUTAMIDE
     Indication: Extramammary Paget^s disease
  3. CARBOPLATIN [Suspect]
     Active Substance: CARBOPLATIN
     Indication: Extramammary Paget^s disease
     Dosage: AREA UNDER THE CURVE (AUC) OF 5 EVERY 3 WEEKS
     Route: 065
     Dates: start: 201601, end: 201605
  4. GEMCITABINE [Suspect]
     Active Substance: GEMCITABINE
     Indication: Extramammary Paget^s disease
     Dosage: 800 MILLIGRAM DAY 1, DAY 8 EVERY 3 WEEKS
     Route: 048
     Dates: start: 201908, end: 201910
  5. GEMCITABINE [Suspect]
     Active Substance: GEMCITABINE
     Indication: Extramammary Paget^s disease
  6. LEUPROLIDE ACETATE [Suspect]
     Active Substance: ISOPROPYL ALCOHOL\LEUPROLIDE ACETATE
     Indication: Extramammary Paget^s disease
     Dosage: 11.25 MG,EVERY 3 MONTHS
     Route: 030
     Dates: start: 201906, end: 201908
  7. LEUPROLIDE ACETATE [Suspect]
     Active Substance: ISOPROPYL ALCOHOL\LEUPROLIDE ACETATE
     Indication: Extramammary Paget^s disease
  8. PACLITAXEL [Suspect]
     Active Substance: PACLITAXEL
     Indication: Product used for unknown indication
     Dosage: 150 MG
     Route: 065
     Dates: start: 201605
  9. TRASTUZUMAB [Suspect]
     Active Substance: TRASTUZUMAB
     Indication: Extramammary Paget^s disease
     Dosage: MAINTENANCE DOSE OF 6 MG/KG, Q3W
     Route: 042
  10. TRASTUZUMAB [Suspect]
     Active Substance: TRASTUZUMAB
     Indication: Extramammary Paget^s disease
     Dosage: 6 MG/KG, TIW, AS THIRD-LINE CHEMOTHERAPY
     Route: 042
  11. TRASTUZUMAB [Suspect]
     Active Substance: TRASTUZUMAB
     Dosage: 6 MG/KG
     Route: 042
     Dates: end: 201910
  12. TRASTUZUMAB [Suspect]
     Active Substance: TRASTUZUMAB
     Indication: Extramammary Paget^s disease
     Dosage: 8 MG/KG (LOADING DOSE)
     Route: 065
     Dates: start: 201601
  13. TRASTUZUMAB [Suspect]
     Active Substance: TRASTUZUMAB
     Dosage: CYCLIC, 2 CYCLES
     Route: 042
     Dates: end: 201910
  14. TRASTUZUMAB [Suspect]
     Active Substance: TRASTUZUMAB
     Dosage: UNK, AS MAINTENANCE, FOURTH-LINE CHEMOTHERAPY
     Route: 042
  15. VINORELBINE [Suspect]
     Active Substance: VINORELBINE TARTRATE
     Indication: Off label use
     Dosage: 150 MG, (AS GIVEN ON MONDAY, WEDNESDAY, AND FRIDAY EVERY WEEK)
     Route: 048
     Dates: start: 201808
  16. VINORELBINE [Suspect]
     Active Substance: VINORELBINE TARTRATE
     Indication: Extramammary Paget^s disease
     Dosage: 30 MG, (AS GIVEN ON MONDAY, WEDNESDAY, AND FRIDAY EVERY WEEK)
     Route: 048
     Dates: start: 201901, end: 201905
  17. TRASTUZUMAB [Concomitant]
     Active Substance: TRASTUZUMAB
     Indication: Extramammary Paget^s disease
     Dosage: UNK
     Route: 065
     Dates: start: 201908

REACTIONS (18)
  - Fatigue [Unknown]
  - Febrile neutropenia [Unknown]
  - Anaemia [Unknown]
  - Asthenia [Unknown]
  - Walking disability [Unknown]
  - Mobility decreased [Unknown]
  - Disease progression [Not Recovered/Not Resolved]
  - Extramammary Paget^s disease [Unknown]
  - Gait disturbance [Unknown]
  - Drug intolerance [Unknown]
  - Drug ineffective for unapproved indication [Unknown]
  - Product use in unapproved indication [Unknown]
  - Product use issue [Unknown]
  - Off label use [Unknown]
  - Product use issue [Unknown]
  - Off label use [Recovered/Resolved]
  - Drug effective for unapproved indication [Unknown]
  - Off label use [Unknown]

NARRATIVE: CASE EVENT DATE: 20180801
